FAERS Safety Report 16980411 (Version 1)
Quarter: 2019Q4

REPORT INFORMATION
  Report Type: Spontaneous
  Country: US (occurrence: US)
  Receive Date: 20191031
  Receipt Date: 20191031
  Transmission Date: 20200122
  Serious: No
  Sender: FDA-Public Use
  Company Number: US-INDIVIOR US-INDV-122145-2019

PATIENT
  Sex: Male

DRUGS (1)
  1. SUBLOCADE [Suspect]
     Active Substance: BUPRENORPHINE
     Indication: DRUG DEPENDENCE
     Dosage: 300 MILLIGRAM, ONE TIME DOSE
     Route: 065
     Dates: start: 20191016, end: 201910

REACTIONS (3)
  - Drug withdrawal syndrome [Not Recovered/Not Resolved]
  - Injection site cellulitis [Unknown]
  - Drug delivery system removal [Recovered/Resolved]

NARRATIVE: CASE EVENT DATE: 201910
